FAERS Safety Report 4931550-7 (Version None)
Quarter: 2006Q1

REPORT INFORMATION
  Report Type: 
  Country: None (occurrence: None)
  Receive Date: 20060303
  Receipt Date: 20060221
  Transmission Date: 20060701
  Serious: Yes (Hospitalization)
  Sender: FDA-Public Use
  Company Number: JP-BRISTOL-MYERS SQUIBB COMPANY-13299045

PATIENT
  Age: 60 Year
  Sex: Female

DRUGS (2)
  1. ENDOXAN [Suspect]
     Indication: BREAST CANCER
     Route: 042
  2. FARMORUBICIN [Suspect]
     Indication: BREAST CANCER
     Route: 042

REACTIONS (4)
  - ASTHENIA [None]
  - MOVEMENT DISORDER [None]
  - NEUTROPHIL COUNT DECREASED [None]
  - PYREXIA [None]
